FAERS Safety Report 12133943 (Version 1)
Quarter: 2016Q1

REPORT INFORMATION
  Report Type: Spontaneous
  Country: US (occurrence: US)
  Receive Date: 20160301
  Receipt Date: 20160301
  Transmission Date: 20160526
  Serious: No
  Sender: FDA-Public Use
  Company Number: US-INSYS THERAPEUTICS, INC-INS201504-000125

PATIENT
  Sex: Female

DRUGS (3)
  1. SUBSYS [Suspect]
     Active Substance: FENTANYL
     Indication: PAIN
     Route: 060
  2. SUBSYS [Suspect]
     Active Substance: FENTANYL
     Route: 060
  3. GABAPENTIN. [Concomitant]
     Active Substance: GABAPENTIN
     Indication: PERIPHERAL SWELLING

REACTIONS (3)
  - Off label use [Unknown]
  - Product quality issue [Unknown]
  - Application site pain [Not Recovered/Not Resolved]
